FAERS Safety Report 6613811-9 (Version None)
Quarter: 2010Q1

REPORT INFORMATION
  Report Type: 
  Country: None (occurrence: None)
  Receive Date: 20100304
  Receipt Date: 20100223
  Transmission Date: 20100710
  Serious: Yes (Life-Threatening)
  Sender: FDA-Public Use
  Company Number: US-SANOFI-AVENTIS-2010SA011152

PATIENT
  Age: 0 Day
  Sex: Female

DRUGS (1)
  1. AMBIEN [Suspect]
     Route: 064
     Dates: start: 20030101

REACTIONS (2)
  - DRUG EXPOSURE DURING PREGNANCY [None]
  - UMBILICAL CORD AROUND NECK [None]
